FAERS Safety Report 12718341 (Version 1)
Quarter: 2016Q3

REPORT INFORMATION
  Report Type: Spontaneous
  Country: US (occurrence: US)
  Receive Date: 20160906
  Receipt Date: 20160906
  Transmission Date: 20161109
  Serious: No
  Sender: FDA-Public Use
  Company Number: US-B.I. PHARMACEUTICALS,INC./RIDGEFIELD-2016-BI-56477BP

PATIENT
  Age: 32 Year
  Sex: Female

DRUGS (1)
  1. COMBIVENT [Suspect]
     Active Substance: ALBUTEROL SULFATE\IPRATROPIUM BROMIDE
     Indication: ASTHMA
     Dosage: DOSE PER APPLICATION: 40 MCG / 200 MCG; DAILY DOSE: 160 MG / 800 MG
     Route: 055
     Dates: start: 20160826

REACTIONS (3)
  - Incorrect dosage administered [Unknown]
  - Choking [Unknown]
  - Off label use [Unknown]

NARRATIVE: CASE EVENT DATE: 20160826
